FAERS Safety Report 6689761-9 (Version None)
Quarter: 2010Q2

REPORT INFORMATION
  Report Type: 
  Country: None (occurrence: None)
  Receive Date: 20100421
  Receipt Date: 20100414
  Transmission Date: 20101027
  Serious: Yes (Disabling, Other)
  Sender: FDA-Public Use
  Company Number: CA-ASTRAZENECA-2010SE15026

PATIENT
  Age: 56 Year
  Sex: Female

DRUGS (10)
  1. CRESTOR [Suspect]
     Indication: BLOOD CHOLESTEROL ABNORMAL
     Route: 048
     Dates: start: 20090501
  2. CRESTOR [Suspect]
     Route: 048
  3. CRESTOR [Suspect]
     Route: 048
     Dates: end: 20100401
  4. METOPROLOL TARTRATE [Concomitant]
     Indication: HYPERTENSION
  5. LISINOPRIL [Concomitant]
     Indication: HYPERTENSION
     Route: 048
  6. METOFORMIN [Concomitant]
     Indication: DIABETES MELLITUS
  7. ASPIRIN [Concomitant]
  8. HYDROCHLOROTHIAZIDE [Concomitant]
     Indication: HYPERTENSION
  9. HUMALOG [Concomitant]
     Indication: DIABETES MELLITUS
     Dosage: 25 UNITS IN AM, 30 UNITS IN THE PM, 32 UNITS SUPPER
  10. LANTUS [Concomitant]
     Indication: DIABETES MELLITUS
     Dosage: 86 UNITES BEDTIME

REACTIONS (21)
  - ABDOMINAL PAIN [None]
  - AMNESIA [None]
  - ASTHENIA [None]
  - DIARRHOEA [None]
  - DYSPNOEA [None]
  - FALL [None]
  - GINGIVAL SWELLING [None]
  - HEADACHE [None]
  - INSOMNIA [None]
  - MYALGIA [None]
  - NAUSEA [None]
  - NECK PAIN [None]
  - OEDEMA PERIPHERAL [None]
  - PAIN IN EXTREMITY [None]
  - SCAR [None]
  - SWELLING FACE [None]
  - SWOLLEN TONGUE [None]
  - TOOTH EXTRACTION [None]
  - URTICARIA [None]
  - VOMITING [None]
  - WEIGHT DECREASED [None]
